FAERS Safety Report 8484286-2 (Version None)
Quarter: 2012Q3

REPORT INFORMATION
  Report Type: 
  Country: None (occurrence: None)
  Receive Date: 20120703
  Receipt Date: 20120625
  Transmission Date: 20120928
  Serious: Yes (Hospitalization)
  Sender: FDA-Public Use
  Company Number: US-BAYER-2012-063947

PATIENT
  Age: 25 Year
  Sex: Female
  Weight: 77.098 kg

DRUGS (7)
  1. FAMOTIDINE [Concomitant]
  2. CLINDAMYCIN PHOSPHATE [Concomitant]
     Dosage: APPLY 2 TIMES A DAY TO AFFECTED AREA
     Dates: start: 20100930
  3. SULFAMETHOXAZOLE AND TRIMETHOPRIM [Concomitant]
  4. ATENOLOL [Concomitant]
  5. YASMIN [Suspect]
  6. NAPROXEN [Concomitant]
  7. IBUPROFEN [Concomitant]

REACTIONS (1)
  - PULMONARY EMBOLISM [None]
